FAERS Safety Report 16179762 (Version 1)
Quarter: 2019Q2

REPORT INFORMATION
  Report Type: Spontaneous
  Country: US (occurrence: US)
  Receive Date: 20190410
  Receipt Date: 20190410
  Transmission Date: 20190711
  Serious: No
  Sender: FDA-Public Use
  Company Number: US-PFIZER INC-2019143472

PATIENT
  Age: 68 Year
  Sex: Female

DRUGS (4)
  1. CEFPROZIL. [Suspect]
     Active Substance: CEFPROZIL
     Dosage: UNK
  2. ESTROGENS CONJUGATED [Suspect]
     Active Substance: ESTROGENS, CONJUGATED
     Dosage: UNK
  3. MOEXIPRIL HCL [Suspect]
     Active Substance: MOEXIPRIL HYDROCHLORIDE
     Dosage: UNK
  4. TRAMADOL HCL [Suspect]
     Active Substance: TRAMADOL HYDROCHLORIDE

REACTIONS (2)
  - Drug hypersensitivity [Unknown]
  - Pruritus [Unknown]
